FAERS Safety Report 9267899 (Version 1)
Quarter: 2013Q2

REPORT INFORMATION
  Report Type: Spontaneous
  Country: US (occurrence: US)
  Receive Date: 20130502
  Receipt Date: 20130502
  Transmission Date: 20140414
  Serious: Yes (Other)
  Sender: FDA-Public Use
  Company Number: US-TEVA-401899USA

PATIENT
  Sex: Male
  Weight: 111.23 kg

DRUGS (15)
  1. AZILECT [Suspect]
     Indication: PARKINSON^S DISEASE
     Dosage: .5 MILLIGRAM DAILY;
     Route: 048
  2. LANTUS [Concomitant]
     Dosage: 60-65 MG  NIGHT DEPENDING ON GLUCOSE
  3. SINEMET [Concomitant]
     Indication: PARKINSON^S DISEASE
     Dosage: 25/100 MG DAILY
     Route: 048
     Dates: start: 20130315
  4. FLOMAX [Concomitant]
     Indication: PROSTATOMEGALY
     Dosage: .8 MILLIGRAM DAILY;
     Route: 048
  5. AMILORIDE [Concomitant]
     Indication: POLYURIA
     Dosage: 10 MILLIGRAM DAILY;
     Route: 048
  6. LOSARTAN [Concomitant]
     Indication: HYPERTENSION
     Dosage: 100 MILLIGRAM DAILY;
     Route: 048
  7. METOPROLOL [Concomitant]
     Indication: HYPERTENSION
     Dosage: 40 MILLIGRAM DAILY;
     Route: 048
  8. ACTOS [Concomitant]
     Indication: DIABETES MELLITUS
     Dosage: 30 MILLIGRAM DAILY;
     Route: 048
  9. TORSEMIDE [Concomitant]
     Indication: POLYURIA
     Dosage: 20 MILLIGRAM DAILY;
     Route: 048
  10. OMEPRAZOLE [Concomitant]
     Indication: GASTROOESOPHAGEAL REFLUX DISEASE
     Dosage: 40 MILLIGRAM DAILY;
     Route: 048
  11. AMLODIPINE [Concomitant]
     Indication: HYPERTENSION
     Dosage: 5 MILLIGRAM DAILY;
     Route: 048
  12. DOXAZOSINE [Concomitant]
     Indication: PROSTATOMEGALY
     Route: 048
  13. ASPIRIN [Concomitant]
     Indication: ANTICOAGULANT THERAPY
     Dosage: 81 MILLIGRAM DAILY;
  14. ATIVAN [Concomitant]
     Indication: ANXIETY
     Dosage: 2 MILLIGRAM DAILY; PRN
     Route: 048
  15. PREDNISONE [Concomitant]
     Indication: EYE INFLAMMATION
     Dosage: PRN UP TO 3 TIMES PER DAY

REACTIONS (3)
  - Hypertension [Unknown]
  - Headache [Unknown]
  - Cough [Unknown]
